FAERS Safety Report 16449961 (Version 1)
Quarter: 2019Q2

REPORT INFORMATION
  Report Type: Spontaneous
  Country: US (occurrence: US)
  Receive Date: 20190509
  Receipt Date: 20190509
  Transmission Date: 20190711
  Serious: Yes (Hospitalization)
  Sender: FDA-Public Use
  Company Number: None

PATIENT
  Age: 31 Year
  Sex: Female

DRUGS (18)
  1. FORTEO [Suspect]
     Active Substance: TERIPARATIDE
     Indication: SENILE OSTEOPOROSIS
     Route: 058
     Dates: start: 20190417
  2. HYDROCORT TAB 5MG [Concomitant]
  3. FORTEO SOL 800/2.4 [Concomitant]
  4. MYCOPHENOLATE TAB 500MG [Concomitant]
     Active Substance: MYCOPHENOLATE MOFETIL
  5. PAZEO DRO 0.7% [Concomitant]
  6. PANTOPRAZOLE TAB 40MG [Concomitant]
  7. TRI-BUFF ASA TAB 325MG [Concomitant]
  8. FLUTICASONE SPR 50MCG [Concomitant]
     Active Substance: FLUTICASONE
  9. FISH OIL CAP 1000MG [Concomitant]
  10. TURMERIC CAP 450MG [Concomitant]
  11. VITAMIN D3 TAB 10000 UNIT [Concomitant]
  12. CALCIUM 600 TAB + D [Concomitant]
  13. PROBIOTIC 10 CAP ADVANCED [Concomitant]
  14. MULTIVITAMIN TAB ADLT 50+ [Concomitant]
  15. ESCITALOPRAM [Concomitant]
     Active Substance: ESCITALOPRAM OXALATE
  16. HYDROXYCHLOR TAB F200MG [Concomitant]
  17. TRAMADOL HCL TAB 50MG [Concomitant]
  18. LISINOPRIL TAB F5MG [Concomitant]

REACTIONS (2)
  - Therapy cessation [None]
  - Surgery [None]

NARRATIVE: CASE EVENT DATE: 20190430
